FAERS Safety Report 21765916 (Version 1)
Quarter: 2022Q4

REPORT INFORMATION
  Report Type: Report from Study
  Country: US (occurrence: US)
  Receive Date: 20221222
  Receipt Date: 20221222
  Transmission Date: 20230112
  Serious: No
  Sender: FDA-Public Use
  Company Number: US-ABBVIE-4207038

PATIENT
  Sex: Female

DRUGS (14)
  1. DUOPA [Suspect]
     Active Substance: CARBIDOPA\LEVODOPA
     Indication: Product used for unknown indication
     Route: 050
     Dates: start: 20160922
  2. DUOPA [Suspect]
     Active Substance: CARBIDOPA\LEVODOPA
  3. RANITIDINE [Concomitant]
     Active Substance: RANITIDINE
     Indication: Product used for unknown indication
     Dosage: STRENGTH: 150 MILLIGRAM
     Route: 048
  4. CELEBREX [Concomitant]
     Active Substance: CELECOXIB
     Indication: Product used for unknown indication
     Dosage: STRENGTH: 200 MILLIGRAM
     Route: 048
  5. ZOLOFT [Concomitant]
     Active Substance: SERTRALINE HYDROCHLORIDE
     Indication: Product used for unknown indication
     Dosage: STRENGTH: 100 MILLIGRAM
     Route: 048
  6. RYTARY [Concomitant]
     Active Substance: CARBIDOPA\LEVODOPA
     Indication: Product used for unknown indication
     Dosage: 23.75-95MG
     Route: 048
  7. AMITIZA [Concomitant]
     Active Substance: LUBIPROSTONE
     Indication: Product used for unknown indication
     Dosage: STRENGTH: 8 MICROGRAM
     Route: 048
  8. AMITIZA [Concomitant]
     Active Substance: LUBIPROSTONE
     Indication: Product used for unknown indication
     Dosage: STRENGTH: 24 MICROGRAM
     Route: 048
  9. AMANTADINE [Concomitant]
     Active Substance: AMANTADINE
     Indication: Product used for unknown indication
     Dosage: STRENGTH: 100 MILLIGRAM
     Route: 048
  10. SINEMET [Concomitant]
     Active Substance: CARBIDOPA\LEVODOPA
     Indication: Product used for unknown indication
     Dosage: 25-100 MG
     Route: 048
  11. MIRALAX [Concomitant]
     Active Substance: POLYETHYLENE GLYCOL 3350
     Indication: Product used for unknown indication
     Dosage: STRENGTH: 17 GRAM ONGOING
     Route: 048
  12. NEUPRO [Concomitant]
     Active Substance: ROTIGOTINE
     Indication: Product used for unknown indication
     Dosage: STRENGTH: 4 MILLIGRAM
     Route: 048
  13. ATIVAN [Concomitant]
     Active Substance: LORAZEPAM
     Indication: Product used for unknown indication
     Dosage: STRENGTH: 0.5 MILLIGRAM
     Route: 048
  14. OMEPRAZOLE [Concomitant]
     Active Substance: OMEPRAZOLE
     Indication: Product used for unknown indication
     Dosage: STRENGTH: 20 MILLIGRAM
     Route: 048

REACTIONS (1)
  - Asthenia [Unknown]
